FAERS Safety Report 14740791 (Version 1)
Quarter: 2018Q2

REPORT INFORMATION
  Report Type: Spontaneous
  Country: US (occurrence: US)
  Receive Date: 20180410
  Receipt Date: 20180410
  Transmission Date: 20180711
  Serious: No
  Sender: FDA-Public Use
  Company Number: US-BAYER-2018-060998

PATIENT
  Age: 80 Year
  Sex: Female

DRUGS (1)
  1. ALEVE [Suspect]
     Active Substance: NAPROXEN SODIUM
     Indication: PAIN
     Dosage: QID; 1-2 DF
     Route: 048
     Dates: start: 20180314

REACTIONS (9)
  - Crying [Unknown]
  - Product use issue [Unknown]
  - Weight decreased [None]
  - Headache [Unknown]
  - Nervous system disorder [Unknown]
  - Feeling abnormal [Unknown]
  - Insomnia [None]
  - Depression [Unknown]
  - Decreased appetite [None]
